FAERS Safety Report 19421136 (Version 3)
Quarter: 2022Q1

REPORT INFORMATION
  Report Type: Spontaneous
  Country: DE (occurrence: DE)
  Receive Date: 20210615
  Receipt Date: 20220106
  Transmission Date: 20220423
  Serious: Yes (Death, Life-Threatening, Hospitalization)
  Sender: FDA-Public Use
  Company Number: DE-002147023-NVSC2021DE102373

PATIENT
  Age: 80 Year
  Sex: Female
  Weight: 71 kg

DRUGS (31)
  1. AMLODIPINE BESYLATE [Suspect]
     Active Substance: AMLODIPINE BESYLATE
     Dosage: 5 DF, 2X/DAY (ONCE IN THE MORNING, ONCE IN THE EVENING)
     Route: 065
     Dates: start: 200803
  2. AMLODIPINE [Suspect]
     Active Substance: AMLODIPINE BESYLATE
     Dosage: 5 MG
     Route: 065
     Dates: start: 2016, end: 2017
  3. AMLODIPINE [Suspect]
     Active Substance: AMLODIPINE BESYLATE
     Dosage: 5 MG, BID STOPPED ON 12 JUN 2018, ONGOING AT DISCHARGE FROM REHABILITATION, (8 A.M AND 6 P.M)
     Route: 048
     Dates: start: 20180523, end: 20180612
  4. AMLODIPINE [Suspect]
     Active Substance: AMLODIPINE BESYLATE
     Dosage: 5 MG, 2X/DAY (8 A.M AND 6 P.M)
     Route: 048
  5. BISOPROLOL FUMARATE\HYDROCHLOROTHIAZIDE [Suspect]
     Active Substance: BISOPROLOL FUMARATE\HYDROCHLOROTHIAZIDE
     Dosage: UNK
     Route: 065
     Dates: start: 2014, end: 2018
  6. PREDNISOLONE [Suspect]
     Active Substance: PREDNISOLONE
     Dosage: UNK
     Route: 065
  7. LEVOTHYROXINE SODIUM [Suspect]
     Active Substance: LEVOTHYROXINE SODIUM
     Dosage: UNK
     Route: 065
     Dates: start: 2014, end: 2016
  8. LEVOTHYROXINE SODIUM [Suspect]
     Active Substance: LEVOTHYROXINE SODIUM
     Dosage: 1.25 DF, DAILY
     Route: 048
     Dates: start: 20180524, end: 20180612
  9. VALSARTAN [Suspect]
     Active Substance: VALSARTAN
     Dosage: UNK
     Route: 065
     Dates: start: 201702, end: 2018
  10. ADVITAN [Concomitant]
     Dosage: UNK
     Route: 065
     Dates: start: 2018
  11. SIMVASTATIN [Concomitant]
     Active Substance: SIMVASTATIN
     Dosage: UNK
     Route: 065
     Dates: start: 201902
  12. HYDROMORPHONE [Concomitant]
     Active Substance: HYDROMORPHONE
     Dosage: 2 MG
     Route: 065
     Dates: start: 201902
  13. FERROUS GLUCONATE [Concomitant]
     Active Substance: FERROUS GLUCONATE
     Dosage: 1 DF, QD (1X DAILY (MORNING)
     Route: 065
  14. PANTOPRAZOLE [Concomitant]
     Active Substance: PANTOPRAZOLE
     Dosage: UNK, DAILY
     Route: 065
  15. PANTOPRAZOLE [Concomitant]
     Active Substance: PANTOPRAZOLE
     Dosage: 40 MG
     Route: 065
     Dates: start: 201901
  16. LEVOTHYROXINE SODIUM [Concomitant]
     Active Substance: LEVOTHYROXINE SODIUM
     Dosage: 1.25 DF, 1X/DAY
     Route: 065
     Dates: start: 199003, end: 20180612
  17. LEVOTHYROXINE SODIUM [Concomitant]
     Active Substance: LEVOTHYROXINE SODIUM
     Dosage: UNK
     Route: 065
     Dates: start: 2016
  18. FUROSEMIDE [Concomitant]
     Active Substance: FUROSEMIDE
     Dosage: 40 MG, BID
     Route: 065
     Dates: start: 201903
  19. HALOPERIDOL [Concomitant]
     Active Substance: HALOPERIDOL
     Dosage: 30 ML
     Route: 065
     Dates: start: 201902
  20. ACETAMINOPHEN [Concomitant]
     Active Substance: ACETAMINOPHEN
     Dosage: 1000 MG
     Route: 065
     Dates: start: 201903
  21. HYDROCHLOROTHIAZIDE [Concomitant]
     Active Substance: HYDROCHLOROTHIAZIDE
     Dosage: 25 MG, QD (HALF TABLET OF 25 MG)
     Route: 048
     Dates: start: 20180504, end: 20180524
  22. EUTHYROX [Concomitant]
     Active Substance: LEVOTHYROXINE SODIUM
     Dosage: QD (1X 125, 1X DAILY (MORNING))
     Route: 065
  23. POLYETHYLENE GLYCOL 3350\POTASSIUM CHLORIDE\SODIUM BICARBONATE\SODIUM [Concomitant]
     Active Substance: POLYETHYLENE GLYCOL 3350\POTASSIUM CHLORIDE\SODIUM BICARBONATE\SODIUM CHLORIDE
     Dosage: UNK
     Route: 065
     Dates: start: 201902
  24. MOMETASONE [Concomitant]
     Active Substance: MOMETASONE
     Dosage: 1 MG/G
     Route: 065
  25. BISOPROLOL [Concomitant]
     Active Substance: BISOPROLOL
     Dosage: 5 MG, QD ( STOOPED ON 12 JUN 2018 BUT ONGOING AT DISCHARGE FROM REHABILITATION
     Route: 048
     Dates: start: 20180524
  26. MIDAZOLAM [Concomitant]
     Active Substance: MIDAZOLAM
     Dosage: UNK
     Route: 065
     Dates: start: 201903
  27. BISOPROLOL FUMARATE\HYDROCHLOROTHIAZIDE [Concomitant]
     Active Substance: BISOPROLOL FUMARATE\HYDROCHLOROTHIAZIDE
     Dosage: QD (ONE HALF DF X 10/25, 1X DAILY (MORNING))
     Route: 065
     Dates: start: 201302
  28. DIGITOXIN [Concomitant]
     Active Substance: DIGITOXIN
     Dosage: UNK
     Route: 065
     Dates: start: 201901
  29. IBUPROFEN [Concomitant]
     Active Substance: IBUPROFEN
     Dosage: 400 MG, 2X/DAY
     Route: 065
  30. FENTANYL CT [Concomitant]
     Dosage: 12 UG/H
     Route: 065
     Dates: start: 201903
  31. BUSPIRONE KENT [Concomitant]
     Dosage: 5 MG, 1X/DAY (5 MG, QD ( STOOPED ON 12 JUN 2018 BUT ONGOING AT DISCHARGE FROM REHABILITATION)
     Route: 048
     Dates: start: 20180524

REACTIONS (9)
  - Suicidal ideation [Fatal]
  - Metastatic renal cell carcinoma [Not Recovered/Not Resolved]
  - Renal cancer [Fatal]
  - Clear cell renal cell carcinoma [Fatal]
  - Renal neoplasm [Fatal]
  - Metastases to lung [Fatal]
  - Metastases to central nervous system [Unknown]
  - Brain oedema [Unknown]
  - Adenoma benign [Recovered/Resolved]

NARRATIVE: CASE EVENT DATE: 20080101
